FAERS Safety Report 23334607 (Version 1)
Quarter: 2023Q4

REPORT INFORMATION
  Report Type: Other
  Country: US (occurrence: US)
  Receive Date: 20231224
  Receipt Date: 20231224
  Transmission Date: 20240109
  Serious: No
  Sender: FDA-Public Use
  Company Number: US-TRAVERE-2023TVT00707

PATIENT
  Age: 6 Year
  Sex: Female

DRUGS (1)
  1. CHOLBAM [Suspect]
     Active Substance: CHOLIC ACID
     Indication: Inborn error of metabolism
     Route: 048
     Dates: start: 20231013

REACTIONS (2)
  - Pruritus [Unknown]
  - Sleep disorder [Unknown]
